FAERS Safety Report 11422090 (Version 1)
Quarter: 2015Q3

REPORT INFORMATION
  Report Type: Spontaneous
  Country: US (occurrence: None)
  Receive Date: 20150826
  Receipt Date: 20150826
  Transmission Date: 20151125
  Serious: Yes (Hospitalization)
  Sender: FDA-Public Use
  Company Number: None

PATIENT
  Age: 56 Year
  Sex: Male

DRUGS (1)
  1. RITUXIMAB (MOABC2B8 ANTI CD20 CHIMERIC) [Suspect]
     Active Substance: RITUXIMAB
     Indication: NON-CARDIAC CHEST PAIN
     Dates: end: 20150820

REACTIONS (9)
  - Computerised tomogram thorax abnormal [None]
  - Haemoglobin decreased [None]
  - Chest pain [None]
  - Metastases to lung [None]
  - Pyrexia [None]
  - Pulmonary mass [None]
  - Dyspnoea [None]
  - Cough [None]
  - Hyperhidrosis [None]

NARRATIVE: CASE EVENT DATE: 20150820
